FAERS Safety Report 14579739 (Version 4)
Quarter: 2018Q2

REPORT INFORMATION
  Report Type: Spontaneous
  Country: US (occurrence: US)
  Receive Date: 20180227
  Receipt Date: 20180502
  Transmission Date: 20180711
  Serious: No
  Sender: FDA-Public Use
  Company Number: US-009507513-1802USA013372

PATIENT
  Age: 29 Year
  Sex: Female

DRUGS (1)
  1. IMPLANON [Suspect]
     Active Substance: ETONOGESTREL
     Dosage: 1 IMPLANT, LEFT ARM, UNK
     Route: 059

REACTIONS (2)
  - Complication associated with device [Unknown]
  - Scar [Unknown]

NARRATIVE: CASE EVENT DATE: 201710
